FAERS Safety Report 7100047-0 (Version None)
Quarter: 2010Q4

REPORT INFORMATION
  Report Type: 
  Country: None (occurrence: None)
  Receive Date: 20101112
  Receipt Date: 20101028
  Transmission Date: 20110411
  Serious: Yes (Hospitalization, Other)
  Sender: FDA-Public Use
  Company Number: GB-PFIZER INC-2005138305

PATIENT
  Age: 6 Year
  Sex: Male

DRUGS (2)
  1. IBUPROFEN [Suspect]
     Indication: PYREXIA
     Dosage: 100 MG, 1 IN 6 HOUR
     Route: 048
  2. PARACETAMOL [Concomitant]
     Indication: PYREXIA

REACTIONS (6)
  - COAGULOPATHY [None]
  - HAEMORRHAGE [None]
  - NEPHROPATHY TOXIC [None]
  - POST STREPTOCOCCAL GLOMERULONEPHRITIS [None]
  - RENAL FAILURE ACUTE [None]
  - RENAL TUBULAR NECROSIS [None]
